FAERS Safety Report 9065032 (Version 1)
Quarter: 2013Q1

REPORT INFORMATION
  Report Type: Report from Study
  Country: US (occurrence: US)
  Receive Date: 20130130
  Receipt Date: 20130130
  Transmission Date: 20140127
  Serious: No
  Sender: FDA-Public Use
  Company Number: US-ABBOTT-12P-163-0969291-00

PATIENT
  Age: 20 Year
  Sex: Female

DRUGS (4)
  1. HUMIRA 40 MG/0.8 ML PEN [Suspect]
     Indication: CROHN^S DISEASE
     Dates: start: 20120801, end: 20120801
  2. HUMIRA 40 MG/0.8 ML PEN [Suspect]
     Dates: start: 20120815
  3. SPRINTEC [Concomitant]
     Indication: ORAL CONTRACEPTION
     Dosage: 1 DAILY
  4. AZATHIOPRINE [Concomitant]
     Indication: CROHN^S DISEASE
     Dosage: 50MG DAILY

REACTIONS (4)
  - Incorrect dose administered [Not Recovered/Not Resolved]
  - Injury associated with device [Not Recovered/Not Resolved]
  - Excoriation [Unknown]
  - Device malfunction [Unknown]
